FAERS Safety Report 6687120-6 (Version None)
Quarter: 2010Q2

REPORT INFORMATION
  Report Type: 
  Country: None (occurrence: None)
  Receive Date: 20100419
  Receipt Date: 20100408
  Transmission Date: 20101027
  Serious: Yes (Other)
  Sender: FDA-Public Use
  Company Number: US-WATSON-2010-04689

PATIENT
  Age: 61 Year
  Sex: Female

DRUGS (7)
  1. FENTANYL-50 [Suspect]
     Indication: NEURALGIA
     Dosage: 1 PATCH, Q 3 DAYS
     Route: 062
     Dates: start: 20100404
  2. FENTANYL-25 [Suspect]
     Indication: PAIN
     Dosage: UNK
     Route: 062
     Dates: end: 20100403
  3. FENTANYL [Suspect]
     Indication: PAIN
  4. INSULIN [Concomitant]
     Indication: DIABETES MELLITUS
     Dosage: UNK
     Route: 065
  5. ANTIHYPERTENSIVES [Concomitant]
     Indication: BLOOD PRESSURE
     Dosage: UNK
     Route: 065
  6. WATER PILL [Concomitant]
     Indication: BLOOD PRESSURE
     Dosage: UNK
     Route: 065
  7. VICODIN [Concomitant]
     Indication: PAIN
     Dosage: UNK
     Route: 065

REACTIONS (5)
  - ALTERED VISUAL DEPTH PERCEPTION [None]
  - CONVULSION [None]
  - MUSCLE CONTRACTIONS INVOLUNTARY [None]
  - PAIN IN JAW [None]
  - TREMOR [None]
